FAERS Safety Report 9639168 (Version 2)
Quarter: 2013Q4

REPORT INFORMATION
  Report Type: Spontaneous
  Country: IT (occurrence: IT)
  Receive Date: 20131022
  Receipt Date: 20131029
  Transmission Date: 20140711
  Serious: Yes (Hospitalization)
  Sender: FDA-Public Use
  Company Number: PHHY2013IT115134

PATIENT
  Age: 53 Year
  Sex: Female

DRUGS (4)
  1. SERTRALINE [Suspect]
     Indication: BIPOLAR DISORDER
     Dosage: 400 MG, ONCE/SINGLE
     Route: 048
     Dates: start: 20130712, end: 20130712
  2. XANAX [Suspect]
     Indication: BIPOLAR DISORDER
     Dosage: 2 DF, ONCE/SINGLE
     Route: 048
     Dates: start: 20130712, end: 20130712
  3. SEROQUEL [Suspect]
     Indication: BIPOLAR DISORDER
     Dosage: 3 DF, ONCE/SINGLE
     Route: 048
     Dates: start: 20130712, end: 20130712
  4. FELISON [Suspect]
     Indication: BIPOLAR DISORDER
     Dosage: 11 DF, ONCE/SINGLE
     Route: 048
     Dates: start: 20130712, end: 20130712

REACTIONS (3)
  - Bradyphrenia [Recovered/Resolved]
  - Bradykinesia [Recovered/Resolved]
  - Drug abuse [Recovered/Resolved]
